FAERS Safety Report 23795832 (Version 4)
Quarter: 2024Q2

REPORT INFORMATION
  Report Type: Spontaneous
  Country: FR (occurrence: FR)
  Receive Date: 20240429
  Receipt Date: 20240612
  Transmission Date: 20240716
  Serious: Yes (Other)
  Sender: FDA-Public Use
  Company Number: FR-002147023-NVSC2024FR089319

PATIENT
  Age: 54 Year
  Sex: Male

DRUGS (2)
  1. TRILEPTAL [Suspect]
     Active Substance: OXCARBAZEPINE
     Indication: Epilepsy
     Dosage: 300 MG, BID (IN THE MORNING AND EVENING) (FOR 20 YEARS)
     Route: 065
     Dates: start: 2002
  2. TRILEPTAL [Suspect]
     Active Substance: OXCARBAZEPINE
     Dosage: 600 MG (IN THE EVENING) (FOR 20 YEARS)
     Route: 065
     Dates: start: 2002

REACTIONS (21)
  - Epilepsy [Unknown]
  - Balance disorder [Unknown]
  - Mobility decreased [Unknown]
  - Fall [Unknown]
  - Fatigue [Unknown]
  - Myalgia [Unknown]
  - Contusion [Unknown]
  - Skin laceration [Unknown]
  - Bone pain [Unknown]
  - Tendon pain [Unknown]
  - Overweight [Unknown]
  - Posture abnormal [Unknown]
  - Proctalgia [Unknown]
  - Tension [Unknown]
  - Pelvic pain [Unknown]
  - Pain [Unknown]
  - Intervertebral disc protrusion [Unknown]
  - Muscular weakness [Unknown]
  - Visual impairment [Unknown]
  - Thoracic outlet syndrome [Unknown]
  - Feeling abnormal [Unknown]

NARRATIVE: CASE EVENT DATE: 20200101
